FAERS Safety Report 8993264 (Version 3)
Quarter: 2013Q1

REPORT INFORMATION
  Report Type: Spontaneous
  Country: US (occurrence: US)
  Receive Date: 20130102
  Receipt Date: 20130117
  Transmission Date: 20140127
  Serious: No
  Sender: FDA-Public Use
  Company Number: US-PFIZER INC-2012333197

PATIENT
  Sex: Male
  Weight: 72.56 kg

DRUGS (1)
  1. METHYLPREDNISOLONE [Suspect]
     Dosage: 4 MG, UNK
     Route: 048
     Dates: start: 20121227

REACTIONS (3)
  - Product packaging issue [Unknown]
  - Product taste abnormal [Unknown]
  - Dysgeusia [Unknown]
